FAERS Safety Report 11326038 (Version 2)
Quarter: 2015Q3

REPORT INFORMATION
  Report Type: Spontaneous
  Country: US (occurrence: None)
  Receive Date: 20150729
  Receipt Date: 20150918
  Transmission Date: 20151125
  Serious: Yes (Life-Threatening, Hospitalization, Other)
  Sender: FDA-Public Use
  Company Number: 1713747-2015-999231

PATIENT
  Age: 62 Year
  Sex: Male
  Weight: 117 kg

DRUGS (6)
  1. CUSTOM COMBISET [Concomitant]
  2. GRANUFLO 3231 [Concomitant]
  3. NATURALYTE [Concomitant]
     Active Substance: ACETIC ACID\SODIUM ACETATE
  4. OPTIFLUX 200NRE DIALYZER [Concomitant]
  5. FRESENIUS 2008T  HEMODIALYSIS SYSTEM [Concomitant]
     Active Substance: DEVICE
  6. SALINE [Suspect]
     Active Substance: SODIUM CHLORIDE
     Indication: CHRONIC KIDNEY DISEASE
     Dosage: HEMODIALYSIS, IV
     Route: 042
     Dates: start: 20150706, end: 20150715

REACTIONS (9)
  - Pulse absent [None]
  - Bladder pain [None]
  - Cough [None]
  - Cyanosis [None]
  - Groin pain [None]
  - Dysuria [None]
  - Cardiac arrest [None]
  - Unresponsive to stimuli [None]
  - Abdominal pain [None]

NARRATIVE: CASE EVENT DATE: 20150710
